FAERS Safety Report 5953460-9 (Version None)
Quarter: 2008Q4

REPORT INFORMATION
  Report Type: 
  Country: None (occurrence: None)
  Receive Date: 20081114
  Receipt Date: 20081103
  Transmission Date: 20090506
  Serious: No
  Sender: FDA-Public Use
  Company Number: US-BAYER-200837383NA

PATIENT
  Age: 21 Year
  Sex: Female
  Weight: 104 kg

DRUGS (1)
  1. MIRENA [Suspect]
     Indication: CONTRACEPTION
     Route: 015
     Dates: start: 20060401, end: 20071201

REACTIONS (3)
  - ABDOMINAL PAIN LOWER [None]
  - INFERTILITY FEMALE [None]
  - OLIGOMENORRHOEA [None]
